FAERS Safety Report 11128135 (Version 1)
Quarter: 2015Q2

REPORT INFORMATION
  Report Type: Spontaneous
  Country: FR (occurrence: FR)
  Receive Date: 20150521
  Receipt Date: 20150521
  Transmission Date: 20150821
  Serious: Yes (Other)
  Sender: FDA-Public Use
  Company Number: FR-TEVA-543398ISR

PATIENT
  Age: 48 Year
  Sex: Male

DRUGS (1)
  1. ACIDE URSODESOXYCHOLIQUE [Suspect]
     Active Substance: URSODIOL

REACTIONS (1)
  - Hepatic fibrosis [Unknown]
